FAERS Safety Report 5009225-8 (Version None)
Quarter: 2006Q2

REPORT INFORMATION
  Report Type: 
  Country: None (occurrence: None)
  Receive Date: 20060519
  Receipt Date: 20060510
  Transmission Date: 20061013
  Serious: Yes (Hospitalization)
  Sender: FDA-Public Use
  Company Number: 2006BI006765

PATIENT
  Age: 70 Year
  Sex: Female
  Weight: 65 kg

DRUGS (4)
  1. AVONEX [Suspect]
     Indication: MULTIPLE SCLEROSIS
     Dosage: 30 UG; QW; IM
     Route: 030
     Dates: start: 19990601, end: 20040601
  2. AVONEX [Suspect]
     Indication: MULTIPLE SCLEROSIS
     Dosage: 30 UG; QW
     Dates: start: 20040601
  3. LIORESAL [Concomitant]
  4. EMSELEX [Concomitant]

REACTIONS (4)
  - ACCIDENT AT HOME [None]
  - DIFFICULTY IN WALKING [None]
  - LUMBAR VERTEBRAL FRACTURE [None]
  - WHEELCHAIR USER [None]
